FAERS Safety Report 22175636 (Version 1)
Quarter: 2023Q2

REPORT INFORMATION
  Report Type: Report from Study
  Country: CA (occurrence: CA)
  Receive Date: 20230405
  Receipt Date: 20230405
  Transmission Date: 20230721
  Serious: Yes (Hospitalization, Other)
  Sender: FDA-Public Use
  Company Number: None

PATIENT
  Age: 72 Year
  Sex: Male

DRUGS (2)
  1. DOCETAXEL [Suspect]
     Active Substance: DOCETAXEL
     Indication: Prostate cancer
     Route: 065
  2. ELIGARD [Suspect]
     Active Substance: LEUPROLIDE ACETATE
     Indication: Prostate cancer
     Dosage: 1 EVERY 3 MONTHS, SUSTAINED RELEASE
     Route: 058

REACTIONS (11)
  - Arrhythmia [Unknown]
  - Asthenia [Unknown]
  - Chills [Unknown]
  - Decreased appetite [Unknown]
  - Fatigue [Unknown]
  - Immune system disorder [Unknown]
  - Infection [Unknown]
  - Nausea [Unknown]
  - Neoplasm progression [Unknown]
  - Oedema peripheral [Unknown]
  - Pyrexia [Unknown]
